FAERS Safety Report 18501336 (Version 11)
Quarter: 2025Q1

REPORT INFORMATION
  Report Type: Report from Study
  Country: AT (occurrence: AT)
  Receive Date: 20201113
  Receipt Date: 20250328
  Transmission Date: 20250408
  Serious: Yes (Hospitalization, Other)
  Sender: PFIZER
  Company Number: AT-PFM-2020-13056

PATIENT
  Age: 78 Year
  Sex: Male
  Weight: 67 kg

DRUGS (23)
  1. BINIMETINIB [Suspect]
     Active Substance: BINIMETINIB
     Indication: Malignant melanoma
     Dosage: 45 MG, 2X/DAY
     Route: 048
     Dates: start: 20200325, end: 20200530
  2. BINIMETINIB [Suspect]
     Active Substance: BINIMETINIB
     Dosage: 30 MG, 2X/DAY
     Route: 048
     Dates: start: 20200623
  3. ENCORAFENIB [Suspect]
     Active Substance: ENCORAFENIB
     Indication: Malignant melanoma
     Dosage: 450 MG, 1X/DAY
     Route: 048
     Dates: start: 20200325, end: 20200530
  4. ENCORAFENIB [Suspect]
     Active Substance: ENCORAFENIB
     Dosage: 300 MG, 1X/DAY
     Route: 048
     Dates: start: 20200623
  5. PANTOPRAZOLE SODIUM [Concomitant]
     Active Substance: PANTOPRAZOLE SODIUM
     Indication: Prophylaxis
     Route: 065
     Dates: end: 20200402
  6. METOCLOPRAMIDE HYDROCHLORIDE [Concomitant]
     Active Substance: METOCLOPRAMIDE HYDROCHLORIDE
     Indication: Prophylaxis
     Route: 065
     Dates: end: 20200402
  7. DULCOLAX (BISACODYL) [Concomitant]
     Active Substance: BISACODYL
     Indication: Prophylaxis
     Route: 065
     Dates: end: 20200402
  8. FERROUS SULFATE [Concomitant]
     Active Substance: FERROUS SULFATE
     Indication: Prophylaxis
     Route: 065
     Dates: end: 20200402
  9. ATARAX [Concomitant]
     Active Substance: HYDROXYZINE HYDROCHLORIDE
     Route: 065
     Dates: end: 20200402
  10. BETAMETHASONE DIPROPIONATE [Concomitant]
     Active Substance: BETAMETHASONE DIPROPIONATE
     Indication: Adverse event
     Route: 065
     Dates: start: 20200417
  11. METHYLPREDNISOLONE ACEPONATE [Concomitant]
     Active Substance: METHYLPREDNISOLONE ACEPONATE
     Indication: Adverse event
     Route: 065
     Dates: start: 20200417
  12. LASIX [Concomitant]
     Active Substance: FUROSEMIDE
     Indication: Lymphoedema
     Route: 065
     Dates: start: 20200529, end: 20200603
  13. LASIX [Concomitant]
     Active Substance: FUROSEMIDE
     Indication: Face oedema
     Route: 065
     Dates: start: 20200811
  14. OLEOVIT [DEXPANTHENOL;RETINOL] [Concomitant]
     Indication: Prophylaxis
     Route: 065
     Dates: start: 20200529
  15. PASSEDAN [Concomitant]
     Indication: Prophylaxis
     Route: 065
     Dates: start: 20200529, end: 20200529
  16. ATARAX-P [HYDROXYZINE HYDROCHLORIDE] [Concomitant]
     Indication: Prophylaxis
     Route: 065
     Dates: start: 20200529, end: 20200529
  17. LACTULOSE [Concomitant]
     Active Substance: LACTULOSE
     Indication: Prophylaxis
     Route: 065
     Dates: start: 20200531, end: 20201102
  18. PANTOPRAZOLE SODIUM [Concomitant]
     Active Substance: PANTOPRAZOLE SODIUM
     Indication: Prophylaxis
     Route: 065
     Dates: start: 20200604, end: 20200612
  19. HYDROMORPHONE HYDROCHLORIDE [Concomitant]
     Active Substance: HYDROMORPHONE HYDROCHLORIDE
     Indication: Pain
     Route: 065
     Dates: start: 20200402
  20. DEXIBUPROFEN [Concomitant]
     Active Substance: DEXIBUPROFEN
     Indication: Pain
     Route: 065
     Dates: start: 20200402
  21. ACETAMINOPHEN\CAFFEINE\PROPYPHENAZONE [Concomitant]
     Active Substance: ACETAMINOPHEN\CAFFEINE\PROPYPHENAZONE
     Indication: Pain
     Route: 065
     Dates: start: 20200402
  22. ACETAMINOPHEN [Concomitant]
     Active Substance: ACETAMINOPHEN
     Indication: Pain
     Route: 065
     Dates: start: 20200402
  23. CHOLECALCIFEROL [Concomitant]
     Active Substance: CHOLECALCIFEROL
     Indication: Prophylaxis
     Dates: start: 20200529

REACTIONS (12)
  - Pruritus [Recovered/Resolved]
  - Rash maculo-papular [Recovered/Resolved]
  - Rash maculo-papular [Recovered/Resolved]
  - Eosinophilia [Recovered/Resolved]
  - Face oedema [Recovered/Resolved]
  - Rash maculo-papular [Recovered/Resolved]
  - Rash maculo-papular [Recovered/Resolved]
  - Lichen planus [Recovered/Resolved]
  - Superficial vein thrombosis [Recovered/Resolved]
  - Arthritis [Recovered/Resolved]
  - Mitral valve disease [Not Recovered/Not Resolved]
  - Aortic valve disease [Not Recovered/Not Resolved]

NARRATIVE: CASE EVENT DATE: 20200401
